FAERS Safety Report 6066853-9 (Version None)
Quarter: 2009Q1

REPORT INFORMATION
  Report Type: 
  Country: None (occurrence: None)
  Receive Date: 20090205
  Receipt Date: 20090129
  Transmission Date: 20090719
  Serious: Yes (Other)
  Sender: FDA-Public Use
  Company Number: FI-JNJFOC-20081004698

PATIENT
  Age: 41 Year
  Sex: Male

DRUGS (5)
  1. TOPIMAX [Suspect]
     Route: 048
  2. TOPIMAX [Suspect]
     Route: 048
  3. TOPIMAX [Suspect]
     Indication: EPILEPSY
     Route: 048
  4. TRILEPTAL [Concomitant]
     Route: 065
  5. KEPPRA [Concomitant]
     Route: 065

REACTIONS (3)
  - ACCIDENTAL OVERDOSE [None]
  - FEAR [None]
  - MEMORY IMPAIRMENT [None]
